FAERS Safety Report 8819836 (Version 1)
Quarter: 2012Q4

REPORT INFORMATION
  Report Type: 
  Country: US (occurrence: US)
  Receive Date: 20121001
  Receipt Date: 20121001
  Transmission Date: 20130627
  Serious: Yes (Other)
  Sender: FDA-Public Use
  Company Number: US-BAYER-2012-100414

PATIENT
  Age: 64 Year
  Sex: Female
  Weight: 58 kg

DRUGS (1)
  1. BAYER ADVANCED ASPIRIN REGULAR STRENGTH [Suspect]
     Indication: HEADACHE
     Dosage: 1 DF, PRN
     Route: 048

REACTIONS (4)
  - Oesophageal pain [Not Recovered/Not Resolved]
  - Sensation of foreign body [Not Recovered/Not Resolved]
  - Oesophageal spasm [Not Recovered/Not Resolved]
  - Oesophageal discomfort [Not Recovered/Not Resolved]
